FAERS Safety Report 7057257-0 (Version None)
Quarter: 2010Q4

REPORT INFORMATION
  Report Type: 
  Country: None (occurrence: None)
  Receive Date: 20101021
  Receipt Date: 20101021
  Transmission Date: 20110411
  Serious: No
  Sender: FDA-Public Use
  Company Number: None

PATIENT
  Age: 21 Year
  Sex: Female
  Weight: 48.5349 kg

DRUGS (2)
  1. BENZOYL PEROXIDE 6% ACELLA [Suspect]
     Indication: ACNE
     Dosage: ONE FOAMING CLOTH 6% TWICE DAILY TOP
     Route: 061
     Dates: start: 20101013, end: 20101020
  2. DIFFERIN [Concomitant]

REACTIONS (2)
  - PRODUCT QUALITY ISSUE [None]
  - SKIN IRRITATION [None]
